FAERS Safety Report 7082243-4 (Version None)
Quarter: 2010Q4

REPORT INFORMATION
  Report Type: 
  Country: None (occurrence: None)
  Receive Date: 20101104
  Receipt Date: 20100921
  Transmission Date: 20110411
  Serious: Yes (Other)
  Sender: FDA-Public Use
  Company Number: US-RANBAXY-2010US-39043

PATIENT

DRUGS (1)
  1. VERAPAMIL [Suspect]
     Dosage: 240 MG, 3 TABLETS
     Route: 048

REACTIONS (5)
  - ACCIDENTAL EXPOSURE [None]
  - ACCIDENTAL OVERDOSE [None]
  - ATRIOVENTRICULAR BLOCK FIRST DEGREE [None]
  - DRUG TOXICITY [None]
  - VENTRICULAR EXTRASYSTOLES [None]
